FAERS Safety Report 6619454-5 (Version None)
Quarter: 2010Q1

REPORT INFORMATION
  Report Type: 
  Country: None (occurrence: None)
  Receive Date: 20100301
  Receipt Date: 20100208
  Transmission Date: 20100710
  Serious: Yes (Other)
  Sender: FDA-Public Use
  Company Number: 2010-00933

PATIENT
  Age: 60 Year
  Sex: Male

DRUGS (3)
  1. THERACYS      (BCG - IT) [Suspect]
     Indication: BLADDER CANCER
     Route: 043
     Dates: start: 20100119, end: 20100119
  2. TRICOR [Concomitant]
  3. SYNTHROID [Concomitant]

REACTIONS (3)
  - BALANITIS [None]
  - DYSURIA [None]
  - LYMPHADENOPATHY [None]
